FAERS Safety Report 4831276-4 (Version None)
Quarter: 2005Q4

REPORT INFORMATION
  Report Type: 
  Country: None (occurrence: None)
  Receive Date: 20051118
  Receipt Date: 20050722
  Transmission Date: 20060501
  Serious: Yes (Death)
  Sender: FDA-Public Use
  Company Number: JP-AVENTIS-200512155EU

PATIENT
  Age: 75 Year
  Sex: Female

DRUGS (7)
  1. ZOTON [Suspect]
     Indication: DRUG USE FOR UNKNOWN INDICATION
     Route: 048
  2. FRUSEMIDE [Suspect]
     Indication: DRUG USE FOR UNKNOWN INDICATION
  3. ASPIRIN [Suspect]
     Indication: DRUG USE FOR UNKNOWN INDICATION
  4. LISINOPRIL [Suspect]
     Indication: DRUG USE FOR UNKNOWN INDICATION
  5. ATENOLOL [Suspect]
     Indication: DRUG USE FOR UNKNOWN INDICATION
  6. GLYCERYL TRINITRATE [Suspect]
     Indication: DRUG USE FOR UNKNOWN INDICATION
  7. ATORVASTATIN CALCIUM [Suspect]
     Indication: DRUG USE FOR UNKNOWN INDICATION

REACTIONS (13)
  - ACUTE MYOCARDIAL INFARCTION [None]
  - COLON CANCER [None]
  - GASTROINTESTINAL HAEMORRHAGE [None]
  - LARYNGOSPASM [None]
  - LARYNGOTRACHEAL OEDEMA [None]
  - LOWER GASTROINTESTINAL HAEMORRHAGE [None]
  - LOWER RESPIRATORY TRACT INFECTION [None]
  - MYOCARDIAL INFARCTION [None]
  - OBSTRUCTIVE AIRWAYS DISORDER [None]
  - OVERDOSE [None]
  - POST PROCEDURAL COMPLICATION [None]
  - PULMONARY OEDEMA [None]
  - STRIDOR [None]
